FAERS Safety Report 18112691 (Version 3)
Quarter: 2020Q4

REPORT INFORMATION
  Report Type: Spontaneous
  Country: JP (occurrence: JP)
  Receive Date: 20200805
  Receipt Date: 20201019
  Transmission Date: 20210113
  Serious: Yes (Death, Other)
  Sender: FDA-Public Use
  Company Number: JP-ROCHE-2654300

PATIENT
  Age: 29 Year
  Sex: Male
  Weight: 66 kg

DRUGS (3)
  1. ACICLOVIR [Concomitant]
     Active Substance: ACYCLOVIR
     Indication: INFECTION PROPHYLAXIS
     Route: 048
     Dates: start: 20190918
  2. HEPARINOID [Concomitant]
     Active Substance: CHONDROITIN SULFATE (BOVINE)
     Indication: INFECTION PROPHYLAXIS
     Route: 061
     Dates: start: 20190604
  3. ACTEMRA [Suspect]
     Active Substance: TOCILIZUMAB
     Indication: CYTOKINE RELEASE SYNDROME
     Route: 041
     Dates: start: 20190808, end: 20190808

REACTIONS (12)
  - Pneumonia fungal [Fatal]
  - Respiratory failure [Fatal]
  - Hypogammaglobulinaemia [Recovering/Resolving]
  - Sepsis [Recovering/Resolving]
  - Abdominal pain [Recovered/Resolved]
  - Thrombotic microangiopathy [Fatal]
  - Multiple organ dysfunction syndrome [Fatal]
  - Central nervous system leukaemia [Unknown]
  - Pneumocystis jirovecii pneumonia [Unknown]
  - Weight decreased [Recovered/Resolved]
  - Metabolic acidosis [Fatal]
  - Pancytopenia [Unknown]

NARRATIVE: CASE EVENT DATE: 20190810
